FAERS Safety Report 4540940-6 (Version None)
Quarter: 2004Q4

REPORT INFORMATION
  Report Type: 
  Country: None (occurrence: None)
  Receive Date: 20041229
  Receipt Date: 20041222
  Transmission Date: 20050328
  Serious: Yes (Hospitalization, Other)
  Sender: FDA-Public Use
  Company Number: FR-GLAXOSMITHKLINE-B0362658A

PATIENT
  Age: 83 Year
  Sex: Female
  Weight: 40 kg

DRUGS (9)
  1. DEROXAT [Suspect]
     Indication: ANXIETY
     Dosage: 20MG PER DAY
     Route: 048
     Dates: start: 20041113, end: 20041118
  2. DEROXAT [Suspect]
     Indication: DEPRESSION
     Dosage: 20MG PER DAY
     Route: 048
     Dates: start: 20041113, end: 20041118
  3. PREVISCAN [Suspect]
     Dosage: 5MG PER DAY
     Route: 048
     Dates: end: 20041121
  4. LEVOTHYROX [Concomitant]
  5. FUROSEMIDE [Concomitant]
  6. TRINIPATCH [Concomitant]
  7. CORDARONE [Concomitant]
  8. TEMESTA [Concomitant]
  9. LANSOPRAZOLE [Concomitant]

REACTIONS (9)
  - DRUG INTERACTION [None]
  - FALL [None]
  - HAEMATOMA [None]
  - INTERNATIONAL NORMALISED RATIO INCREASED [None]
  - LOSS OF CONSCIOUSNESS [None]
  - MALAISE [None]
  - NAUSEA [None]
  - PROTHROMBIN TIME SHORTENED [None]
  - VOMITING [None]
